FAERS Safety Report 11811706 (Version 1)
Quarter: 2015Q4

REPORT INFORMATION
  Report Type: Spontaneous
  Country: US (occurrence: US)
  Receive Date: 20151208
  Receipt Date: 20151208
  Transmission Date: 20160305
  Serious: No
  Sender: FDA-Public Use
  Company Number: US-TARO-2015TAR00266

PATIENT
  Age: 60 Year
  Sex: Female

DRUGS (1)
  1. FLUOROURACIL TOPICAL SOLUTION USP 5% [Suspect]
     Active Substance: FLUOROURACIL
     Dosage: 1 GTT, ONCE
     Route: 047
     Dates: start: 20150325, end: 20150325

REACTIONS (3)
  - Eye pain [Recovered/Resolved]
  - Accidental exposure to product [None]
  - Incorrect route of drug administration [Recovered/Resolved]

NARRATIVE: CASE EVENT DATE: 20150325
